FAERS Safety Report 8274749-7 (Version None)
Quarter: 2012Q2

REPORT INFORMATION
  Report Type: 
  Country: None (occurrence: None)
  Receive Date: 20120411
  Receipt Date: 20120406
  Transmission Date: 20120825
  Serious: Yes (Life-Threatening, Other)
  Sender: FDA-Public Use
  Company Number: AU-ROXANE LABORATORIES, INC.-2012-RO-01001RO

PATIENT
  Age: 51 Year
  Sex: Male
  Weight: 90 kg

DRUGS (2)
  1. LITHIUM CARBONATE [Suspect]
     Indication: SCHIZOPHRENIA, PARANOID TYPE
     Dosage: 85750 MG
     Route: 048
  2. OLANZAPINE [Suspect]
     Indication: SCHIZOPHRENIA, PARANOID TYPE
     Dosage: 490 MG
     Route: 048

REACTIONS (4)
  - SUICIDE ATTEMPT [None]
  - SEPTIC SHOCK [None]
  - TOXIC ENCEPHALOPATHY [None]
  - TOXICITY TO VARIOUS AGENTS [None]
